FAERS Safety Report 9915626 (Version 1)
Quarter: 2014Q1

REPORT INFORMATION
  Report Type: Spontaneous
  Country: US (occurrence: None)
  Receive Date: 20140219
  Receipt Date: 20140219
  Transmission Date: 20141002
  Serious: Yes (Other)
  Sender: FDA-Public Use
  Company Number: None

PATIENT
  Age: 56 Year
  Sex: Female
  Weight: 67.13 kg

DRUGS (25)
  1. HYDROCODON - ACETAMINOPHEN [Suspect]
     Indication: BACK PAIN
     Route: 048
  2. HYDROCODON - ACETAMINOPHEN [Suspect]
     Indication: ARTHRALGIA
     Route: 048
  3. ZYRTEC [Concomitant]
  4. CALCIUM CITRATE [Concomitant]
  5. TWICE DIALY MULTI ENERGY VITAMIN [Concomitant]
  6. IRON [Concomitant]
  7. GINKO BILOBA [Concomitant]
  8. VITAMIN D3 [Concomitant]
  9. C-1000 COMPLEX [Concomitant]
  10. BIOTIN [Concomitant]
  11. DOCUSATE SODIUM [Concomitant]
  12. BUPROPION HCL SR [Concomitant]
  13. LESCOL XL [Concomitant]
  14. QUETIAPINE [Concomitant]
  15. ABILIFY [Concomitant]
  16. GABAPENTIN [Concomitant]
  17. CYCLOBENZAPHRINE [Concomitant]
  18. GAS X ULTRA STRENGTH [Concomitant]
  19. NASONEX [Concomitant]
  20. CELEBREX [Concomitant]
  21. VOLTAREN GEL 1% [Concomitant]
  22. THE TREATMENT - FORMULA 3 [Concomitant]
  23. ANGELIQ [Concomitant]
  24. RITE AID PAIN RELIEVER [Concomitant]
  25. MOTRIN [Concomitant]

REACTIONS (2)
  - Feeling jittery [None]
  - Movement disorder [None]
